FAERS Safety Report 19451215 (Version 1)
Quarter: 2021Q2

REPORT INFORMATION
  Report Type: Spontaneous
  Country: US (occurrence: US)
  Receive Date: 20210622
  Receipt Date: 20210622
  Transmission Date: 20210717
  Serious: No
  Sender: FDA-Public Use
  Company Number: None

PATIENT
  Age: 78 Year
  Sex: Female

DRUGS (1)
  1. ACTHAR [Suspect]
     Active Substance: CORTICOTROPIN
     Indication: NEPHROTIC SYNDROME
     Dosage: ?          OTHER FREQUENCY:OTHER;?DOSE OR AMOUNT: 80 UNITS
     Route: 058
     Dates: start: 2019

REACTIONS (2)
  - Cardiac failure congestive [None]
  - Pulmonary oedema [None]

NARRATIVE: CASE EVENT DATE: 20210618
